FAERS Safety Report 4843914-0 (Version None)
Quarter: 2005Q4

REPORT INFORMATION
  Report Type: 
  Country: None (occurrence: None)
  Receive Date: 20051202
  Receipt Date: 20040726
  Transmission Date: 20060501
  Serious: No
  Sender: FDA-Public Use
  Company Number: US-GLAXOSMITHKLINE-A0519702A

PATIENT
  Age: 33 Year
  Sex: Female

DRUGS (3)
  1. AUGMENTIN [Suspect]
     Indication: URINARY TRACT INFECTION
     Dosage: 875MG TWICE PER DAY
     Route: 048
  2. AUGMENTIN [Suspect]
     Dosage: 500MG TWICE PER DAY
     Route: 048
     Dates: start: 20050814
  3. FLAGYL [Concomitant]

REACTIONS (3)
  - ABDOMINAL PAIN UPPER [None]
  - DIARRHOEA [None]
  - GASTROINTESTINAL PAIN [None]
